FAERS Safety Report 6543866-1 (Version None)
Quarter: 2010Q1

REPORT INFORMATION
  Report Type: 
  Country: None (occurrence: None)
  Receive Date: 20100120
  Receipt Date: 20100112
  Transmission Date: 20100710
  Serious: Yes (Death, Hospitalization, Other)
  Sender: FDA-Public Use
  Company Number: DE-AMGEN-QUU381071

PATIENT
  Sex: Female
  Weight: 59.3 kg

DRUGS (7)
  1. VECTIBIX [Suspect]
     Indication: COLORECTAL CANCER
     Route: 042
     Dates: start: 20090714, end: 20090825
  2. METAMIZOLE [Concomitant]
  3. MOVICOL [Concomitant]
  4. MST [Concomitant]
  5. MCP-RATIOPHARM [Concomitant]
  6. PANTOPRAZOLE [Concomitant]
  7. CALCIUM [Concomitant]
     Route: 048

REACTIONS (12)
  - GENERAL PHYSICAL HEALTH DETERIORATION [None]
  - HEPATIC FAILURE [None]
  - HEPATIC PAIN [None]
  - HYPOCALCAEMIA [None]
  - MALIGNANT NEOPLASM PROGRESSION [None]
  - METASTASES TO BONE [None]
  - METASTASES TO LIVER [None]
  - METASTASES TO LUNG [None]
  - MUSCLE SPASMS [None]
  - MYALGIA [None]
  - PELVIC PAIN [None]
  - RESPIRATORY FAILURE [None]
